FAERS Safety Report 7350728-9 (Version None)
Quarter: 2011Q1

REPORT INFORMATION
  Report Type: 
  Country: None (occurrence: None)
  Receive Date: 20110314
  Receipt Date: 20110303
  Transmission Date: 20110831
  Serious: Yes (Other)
  Sender: FDA-Public Use
  Company Number: CA-JNJFOC-20100706478

PATIENT
  Sex: Female
  Weight: 61.2 kg

DRUGS (3)
  1. SYNTHROID [Concomitant]
  2. REMICADE [Suspect]
     Route: 042
  3. REMICADE [Suspect]
     Indication: RHEUMATOID ARTHRITIS
     Route: 042

REACTIONS (3)
  - RHEUMATOID ARTHRITIS [None]
  - HYSTERECTOMY [None]
  - THERAPEUTIC RESPONSE DECREASED [None]
